FAERS Safety Report 5820329-X (Version None)
Quarter: 2008Q3

REPORT INFORMATION
  Report Type: 
  Country: None (occurrence: None)
  Receive Date: 20080724
  Receipt Date: 20070607
  Transmission Date: 20090109
  Serious: No
  Sender: FDA-Public Use
  Company Number: A0654613A

PATIENT
  Age: 67 Year
  Sex: Female

DRUGS (2)
  1. AVANDIA [Suspect]
     Dosage: 8MG PER DAY
     Route: 048
     Dates: end: 20070501
  2. HYDROCHLOROTHIAZIDE [Concomitant]

REACTIONS (2)
  - JOINT SWELLING [None]
  - WEIGHT INCREASED [None]
